FAERS Safety Report 6685439-6 (Version None)
Quarter: 2010Q2

REPORT INFORMATION
  Report Type: 
  Country: None (occurrence: None)
  Receive Date: 20100419
  Receipt Date: 20100406
  Transmission Date: 20101027
  Serious: No
  Sender: FDA-Public Use
  Company Number: GB-DENTSPLY-2010-0046-EUR

PATIENT
  Sex: Female

DRUGS (2)
  1. LIDOCAINE [Suspect]
     Indication: PREMEDICATION
  2. POLY-L-LACTIC ACID [Suspect]
     Indication: SKIN COSMETIC PROCEDURE

REACTIONS (2)
  - DYSKINESIA [None]
  - MUSCLE TIGHTNESS [None]
